FAERS Safety Report 23804162 (Version 3)
Quarter: 2024Q2

REPORT INFORMATION
  Report Type: Spontaneous
  Country: GB (occurrence: GB)
  Receive Date: 20240501
  Receipt Date: 20240524
  Transmission Date: 20240716
  Serious: Yes (Hospitalization)
  Sender: FDA-Public Use
  Company Number: GB-UCBSA-2022007311

PATIENT
  Age: 62 Year
  Sex: Male
  Weight: 113 kg

DRUGS (20)
  1. OXALIPLATIN [Suspect]
     Active Substance: OXALIPLATIN
     Indication: Neoplasm
     Dosage: 180 MILLIGRAM, EV 2 WEEKS(QOW)
     Route: 042
     Dates: start: 20220119
  2. LEUCOVORIN [Suspect]
     Active Substance: LEUCOVORIN\LEUCOVORIN CALCIUM
     Indication: Neoplasm
     Dosage: 870 MILLIGRAM, EV 2 WEEKS(QOW)
     Route: 042
     Dates: start: 20220119
  3. GINISORTAMAB [Suspect]
     Active Substance: GINISORTAMAB
     Indication: Neoplasm
     Dosage: 500 MILLIGRAM, EV 2 WEEKS(QOW)
     Route: 042
     Dates: start: 20220119
  4. ACETAMINOPHEN [Concomitant]
     Active Substance: ACETAMINOPHEN
     Indication: Pain in extremity
     Dosage: 1 GRAM, ONCE DAILY (QD)
     Dates: start: 20220125, end: 20220125
  5. METFORMIN [Concomitant]
     Active Substance: METFORMIN HYDROCHLORIDE
     Indication: Type 2 diabetes mellitus
     Dosage: TIME INTERVAL: 0.33333333 DAYS: 500 MILLIGRAM, 3X/DAY (TID)
     Route: 048
     Dates: start: 2018
  6. CODEINE PHOSPHATE [Concomitant]
     Active Substance: CODEINE PHOSPHATE
     Indication: Pain
     Dosage: TIME INTERVAL: AS NECESSARY: 30 MILLIGRAM, AS NEEDED (PRN)
     Dates: start: 2011
  7. OMEPRAZOLE [Concomitant]
     Active Substance: DONEPEZIL HYDROCHLORIDE\OMEPRAZOLE\OMEPRAZOLE MAGNESIUM
     Indication: Product used for unknown indication
     Dosage: 20 MILLIGRAM, ONCE DAILY (QD)
  8. SOLIFENACIN [Concomitant]
     Active Substance: SOLIFENACIN
     Indication: Product used for unknown indication
     Dosage: 5 MILLIGRAM, ONCE DAILY (QD)
  9. GLICLAZIDE [Concomitant]
     Active Substance: GLICLAZIDE
     Indication: Type 2 diabetes mellitus
     Dosage: 80 MILLIGRAM, 2X/DAY (BID)
     Route: 048
     Dates: start: 202110
  10. GABAPENTIN [Concomitant]
     Active Substance: GABAPENTIN
     Indication: Cancer pain
     Dosage: TIME INTERVAL: 0.33333333 DAYS: 300 MILLIGRAM, 3X/DAY (TID)
     Route: 048
     Dates: start: 2020
  11. MORPHINE SULFATE [Concomitant]
     Active Substance: MORPHINE SULFATE
     Indication: Pain
     Dosage: 10 MILLIGRAM, 4X/DAY (QID)
     Dates: start: 20220125
  12. EMPAGLIFLOZIN [Concomitant]
     Active Substance: EMPAGLIFLOZIN
     Indication: Type 2 diabetes mellitus
     Dosage: 10 MILLIGRAM, ONCE DAILY (QD)
     Route: 048
     Dates: start: 202108
  13. IBUPROFEN [Concomitant]
     Active Substance: IBUPROFEN
     Indication: Pain in extremity
     Dosage: 400 MILLIGRAM ONCE, DURATION: 1 DAY
     Dates: start: 20220125, end: 20220125
  14. FLUOROURACIL [Suspect]
     Active Substance: FLUOROURACIL
     Indication: Neoplasm
     Dosage: TIME INTERVAL: CYCLICAL: 5000 MG, EVERY 2 WEEKS
     Route: 042
     Dates: start: 20220119
  15. FLUOROURACIL [Suspect]
     Active Substance: FLUOROURACIL
     Indication: Neoplasm
     Dosage: 5000 MG AND 900 MG, EV 2 WEEKS(QOW)
     Route: 042
     Dates: start: 20220119
  16. LEUCOVORIN [Concomitant]
     Active Substance: LEUCOVORIN\LEUCOVORIN CALCIUM
     Indication: Neoplasm
     Dosage: TIME INTERVAL: 1 CYCLICAL: 870 MG, EVERY 2 WEEKS
     Route: 042
     Dates: start: 20220119
  17. DEXAMETHASONE [Concomitant]
     Active Substance: DEXAMETHASONE
     Indication: Product used for unknown indication
     Dosage: 4 MILLIGRAM, 2X/DAY (BID)
     Dates: start: 20220119
  18. SEMAGLUTIDE [Concomitant]
     Active Substance: SEMAGLUTIDE
     Indication: Type 2 diabetes mellitus
     Dosage: 14 MILLIGRAM, ONCE DAILY (QD)
     Route: 048
     Dates: start: 202108
  19. ATORVASTATIN [Concomitant]
     Active Substance: ATORVASTATIN
     Indication: Hypercholesterolaemia
     Dosage: 20 MILLIGRAM, ONCE DAILY (QD)
     Route: 048
     Dates: start: 2020
  20. DOMPERIDONE [Concomitant]
     Active Substance: DOMPERIDONE
     Indication: Product used for unknown indication
     Dosage: TIME INTERVAL: 0.33333333 DAYS: 10 MILLIGRAM, 3X/DAY (TID)
     Dates: start: 20220119

REACTIONS (1)
  - Vascular device infection [Recovered/Resolved]

NARRATIVE: CASE EVENT DATE: 20220203
